FAERS Safety Report 8906047 (Version 1)
Quarter: 2012Q4

REPORT INFORMATION
  Report Type: 
  Country: US (occurrence: US)
  Receive Date: 20121112
  Receipt Date: 20121112
  Transmission Date: 20130627
  Serious: No
  Sender: FDA-Public Use
  Company Number: US-PFIZER INC-2012281486

PATIENT
  Age: 33 Year
  Sex: Female
  Weight: 68.03 kg

DRUGS (4)
  1. GEODON [Suspect]
     Indication: ANXIETY
     Dosage: 80 mg, daily
     Dates: start: 200708, end: 201205
  2. PROZAC [Concomitant]
     Indication: ANXIETY
     Dosage: 40 mg, daily
  3. XANAX [Concomitant]
     Indication: PANIC ATTACKS
     Dosage: 1 mg, 2x/day as needed
  4. XANAX [Concomitant]
     Indication: ANXIETY

REACTIONS (1)
  - Amnesia [Not Recovered/Not Resolved]
